FAERS Safety Report 9612786 (Version 1)
Quarter: 2013Q4

REPORT INFORMATION
  Report Type: Spontaneous
  Country: GB (occurrence: GB)
  Receive Date: 20131010
  Receipt Date: 20131010
  Transmission Date: 20140711
  Serious: Yes (Life-Threatening, Hospitalization, Other)
  Sender: FDA-Public Use
  Company Number: GB-TEVA-436374ISR

PATIENT
  Age: 38 Year
  Sex: Male

DRUGS (11)
  1. DIAZEPAM [Suspect]
     Indication: CATATONIA
     Dosage: 45 MG, UNK
     Route: 048
     Dates: start: 20130205, end: 20130208
  2. DIAZEPAM [Suspect]
     Dosage: 5 MG, UNK
     Route: 048
  3. CLOZARIL [Suspect]
     Indication: SCHIZOPHRENIA
     Route: 048
     Dates: start: 20010701
  4. CLOZARIL [Suspect]
     Route: 048
     Dates: start: 20130122, end: 20130208
  5. CLOZARIL [Suspect]
     Route: 048
     Dates: start: 20130227
  6. CLOZARIL [Suspect]
     Route: 048
  7. LORAZEPAM [Concomitant]
     Dosage: ON UNSPECIFIED DATE THE DOSE WAS REDUCED.
  8. THIAMINE [Concomitant]
     Indication: WERNICKE^S ENCEPHALOPATHY
     Dosage: 300 MG, UNK
     Route: 048
     Dates: start: 20130109, end: 20130206
  9. VITAMIN B COMPOUND [Concomitant]
     Indication: WERNICKE^S ENCEPHALOPATHY
     Route: 048
     Dates: start: 20130109, end: 20130206
  10. LANSOPRAZOLE [Concomitant]
     Indication: DYSPEPSIA
     Dosage: 30 MG, UNK
     Route: 048
     Dates: start: 20030109
  11. FRESUBIN, NUTRITIONAL SUPPLEMENT [Concomitant]
     Dosage: 300 ML, UNK
     Route: 048
     Dates: start: 20130201, end: 20130206

REACTIONS (10)
  - Catatonia [Recovered/Resolved]
  - Coma [Recovering/Resolving]
  - Blood creatine phosphokinase increased [Unknown]
  - Oculocephalogyric reflex absent [Unknown]
  - Mental impairment [Unknown]
  - Neuroleptic malignant syndrome [Unknown]
  - Neutrophil count decreased [Recovered/Resolved]
  - Miosis [Unknown]
  - Respiratory depression [Unknown]
  - White blood cell count decreased [Recovered/Resolved]
